FAERS Safety Report 6275537-3 (Version None)
Quarter: 2009Q3

REPORT INFORMATION
  Report Type: 
  Country: None (occurrence: None)
  Receive Date: 20090721
  Receipt Date: 20090709
  Transmission Date: 20100115
  Serious: Yes (Other)
  Sender: FDA-Public Use
  Company Number: US-PFIZER INC-2009201904

PATIENT
  Sex: Female
  Weight: 117.46 kg

DRUGS (22)
  1. GENOTROPIN [Suspect]
     Indication: HYPOPITUITARISM
     Dosage: 0.9 MG, 1X/DAY
     Route: 058
     Dates: start: 20000103
  2. SYNTHROID [Concomitant]
     Dosage: 100 UG, 1X/DAY
  3. TOPROL-XL [Concomitant]
     Dosage: 100 MG, 1X/DAY
  4. CORTEF [Concomitant]
     Dosage: 15 MG, UNK
  5. LYRICA [Concomitant]
     Dosage: 150 MG, 1X2 DAILY
  6. OXYCONTIN [Concomitant]
     Dosage: 40 MG, 1X2 DAILY
  7. ADDERALL XR 5 [Concomitant]
     Dosage: 30 MG, 1X/DAY
  8. FLEXERIL [Concomitant]
     Dosage: 10 MG, 1X2 DAILY, AS NEEDED
  9. LASIX [Concomitant]
     Dosage: 40 MG, 1X2 DAILY, AS NEEDED
  10. CLONIDINE [Concomitant]
     Dosage: 0.1 MG, UNK
  11. NEXIUM [Concomitant]
     Dosage: 40 MG, UNK
  12. PRAVACHOL [Concomitant]
     Dosage: 40 MG, UNK
  13. ALLOPURINOL [Concomitant]
     Dosage: 300 MG, UNK
  14. LUNESTA [Concomitant]
     Dosage: 2 MG, UNK
  15. GUAIFENESIN DM [Concomitant]
     Dosage: 400 MG, 3 X 3 DAILY
  16. CENTRUM [Concomitant]
     Dosage: UNK
  17. CALCIUM D3 ^STADA^ [Concomitant]
     Dosage: UNK MG, UNK
  18. GLUCOSAMINE [Concomitant]
     Dosage: UNK
  19. MAGNESIUM [Concomitant]
     Dosage: 250 MG, 1X/DAY
  20. ACETYLSALICYLIC ACID [Concomitant]
     Dosage: 81 MG, 1 X NIGHTLY
  21. VITAMIN E [Concomitant]
     Dosage: UNK
  22. EFFEXOR [Concomitant]

REACTIONS (3)
  - ANXIETY [None]
  - DEPRESSION [None]
  - MEMORY IMPAIRMENT [None]
